FAERS Safety Report 20230677 (Version 2)
Quarter: 2022Q1

REPORT INFORMATION
  Report Type: Report from Study
  Country: US (occurrence: US)
  Receive Date: 20211227
  Receipt Date: 20220330
  Transmission Date: 20220423
  Serious: Yes (Other)
  Sender: FDA-Public Use
  Company Number: US-ABBVIE-21K-163-4212054-00

PATIENT
  Age: 68 Year
  Sex: Male

DRUGS (15)
  1. HUMIRA [Suspect]
     Active Substance: ADALIMUMAB
     Indication: Uveitis
     Route: 058
     Dates: start: 20180119
  2. MODERNA COVID-19 VACCINE [Suspect]
     Active Substance: ELASOMERAN
     Indication: COVID-19 immunisation
     Route: 030
  3. MODERNA COVID-19 VACCINE [Suspect]
     Active Substance: ELASOMERAN
     Dosage: BOOSTER DOSE
     Route: 030
  4. PREDNISOLONE ACETATE [Concomitant]
     Active Substance: PREDNISOLONE ACETATE
     Indication: Product used for unknown indication
     Dosage: SUS 1 DROP 1 DAY RIGHT AND LEFT EYE
     Route: 047
  5. DORZOLAMIDE + TIMOLOL [Concomitant]
     Indication: Product used for unknown indication
     Dosage: 1 DROP TWICE A DAY RIGHT AND LEFT EYE
     Route: 047
  6. FOLIC ACID [Concomitant]
     Active Substance: FOLIC ACID
     Indication: Product used for unknown indication
     Route: 048
  7. ILEVRO [Concomitant]
     Active Substance: NEPAFENAC
     Indication: Product used for unknown indication
     Dosage: 1 DROP ONCE A DAY LEFT EYE
     Route: 047
  8. VITAMIN D3 [Concomitant]
     Active Substance: CHOLECALCIFEROL
     Indication: Product used for unknown indication
  9. BRIMONIDINE [Concomitant]
     Active Substance: BRIMONIDINE TARTRATE
     Indication: Product used for unknown indication
     Dosage: 1 DROP THREE TIMES  A DAY IN LEFT EYE
     Route: 047
  10. ZETIA [Concomitant]
     Active Substance: EZETIMIBE
     Indication: Product used for unknown indication
     Route: 048
  11. CARBAMAZEPINE [Concomitant]
     Active Substance: CARBAMAZEPINE
     Indication: Product used for unknown indication
     Route: 048
  12. ATORVASTATIN [Concomitant]
     Active Substance: ATORVASTATIN
     Indication: Product used for unknown indication
  13. HYDROCHLOROTHIAZIDE [Concomitant]
     Active Substance: HYDROCHLOROTHIAZIDE
     Indication: Product used for unknown indication
     Route: 048
  14. LISINOPRIL [Concomitant]
     Active Substance: LISINOPRIL
     Indication: Product used for unknown indication
     Route: 048
  15. METHOTREXATE [Concomitant]
     Active Substance: METHOTREXATE
     Indication: Product used for unknown indication
     Dosage: DOSE INCREASED TO WEEKLY

REACTIONS (19)
  - Cataract nuclear [Unknown]
  - Ocular hypertension [Unknown]
  - Macular oedema [Unknown]
  - Optic disc haemorrhage [Unknown]
  - Optic atrophy [Unknown]
  - Optic disc haemorrhage [Unknown]
  - Incorrect dose administered [Unknown]
  - Brain neoplasm malignant [Unknown]
  - Weight decreased [Unknown]
  - Uveitis [Unknown]
  - Vitritis [Unknown]
  - Retinitis [Unknown]
  - Choroidal neovascularisation [Unknown]
  - Epiretinal membrane [Unknown]
  - Vitreous detachment [Unknown]
  - Choroiditis [Unknown]
  - Epiretinal membrane [Unknown]
  - Retinal oedema [Unknown]
  - Hepatic enzyme increased [Unknown]

NARRATIVE: CASE EVENT DATE: 20210916
